FAERS Safety Report 4505044-7 (Version None)
Quarter: 2004Q4

REPORT INFORMATION
  Report Type: 
  Country: None (occurrence: None)
  Receive Date: 20041015
  Receipt Date: 20030821
  Transmission Date: 20050328
  Serious: Yes (Other)
  Sender: FDA-Public Use
  Company Number: 2003033496

PATIENT
  Age: 66 Year
  Sex: Male
  Weight: 90.7194 kg

DRUGS (8)
  1. NEURONTIN [Suspect]
     Indication: PAIN
     Dosage: ORAL
     Route: 048
     Dates: start: 20030707, end: 20030709
  2. ANTIHYPERTENSIVES [Concomitant]
  3. CHOLESTEROL AND TRIGLYCERIDE REDUCERS [Concomitant]
  4. ALPRAZOLAM [Concomitant]
  5. ANALGESICS [Concomitant]
  6. ATENOLOL [Concomitant]
  7. CAPTOPRIL [Concomitant]
  8. METFORMIN HCL [Concomitant]

REACTIONS (17)
  - AGITATION [None]
  - ASTHENIA [None]
  - BALANCE DISORDER [None]
  - DISORIENTATION [None]
  - DISTURBANCE IN ATTENTION [None]
  - DIZZINESS [None]
  - DYSPHAGIA [None]
  - DYSPNOEA [None]
  - ILLOGICAL THINKING [None]
  - INSOMNIA [None]
  - IRRITABILITY [None]
  - MOOD ALTERED [None]
  - RASH [None]
  - RESTLESSNESS [None]
  - SOMNOLENCE [None]
  - SPEECH DISORDER [None]
  - VISION BLURRED [None]
